FAERS Safety Report 9426805 (Version 1)
Quarter: 2013Q3

REPORT INFORMATION
  Report Type: Spontaneous
  Country: US (occurrence: None)
  Receive Date: 20130729
  Receipt Date: 20130729
  Transmission Date: 20140515
  Serious: No
  Sender: FDA-Public Use
  Company Number: None

PATIENT
  Age: 41 Year
  Sex: Male

DRUGS (2)
  1. NEUPRO PATCH 3MG UCB [Suspect]
     Indication: PARKINSON^S DISEASE
     Route: 061
     Dates: start: 201206
  2. STALEVO [Concomitant]

REACTIONS (1)
  - Application site erythema [None]
